FAERS Safety Report 5853780-2 (Version None)
Quarter: 2008Q3

REPORT INFORMATION
  Report Type: 
  Country: None (occurrence: None)
  Receive Date: 20080822
  Receipt Date: 20080818
  Transmission Date: 20090109
  Serious: Yes (Hospitalization)
  Sender: FDA-Public Use
  Company Number: ZA-AVENTIS-200817827GDDC

PATIENT
  Sex: Male
  Weight: 52.2 kg

DRUGS (5)
  1. RIFAMPICIN [Suspect]
     Indication: PULMONARY TUBERCULOSIS
     Dosage: DOSE: UNK
     Dates: start: 20080403
  2. ISONIAZID [Suspect]
     Indication: PULMONARY TUBERCULOSIS
     Dosage: DOSE: UNK
     Dates: start: 20080403
  3. ETHAMBUTOL HCL [Suspect]
     Indication: PULMONARY TUBERCULOSIS
     Dosage: DOSE: UNK
     Dates: start: 20080403
  4. PYRAZINAMIDE [Suspect]
     Indication: PULMONARY TUBERCULOSIS
     Dosage: DOSE: UNK
     Dates: start: 20080403
  5. CODE UNBROKEN [Suspect]
     Indication: PULMONARY TUBERCULOSIS
     Dosage: DOSE: UNK
     Dates: start: 20080403

REACTIONS (1)
  - CONVULSION [None]
